FAERS Safety Report 7794219-X (Version None)
Quarter: 2011Q4

REPORT INFORMATION
  Report Type: 
  Country: None (occurrence: None)
  Receive Date: 20111004
  Receipt Date: 20110803
  Transmission Date: 20120403
  Serious: No
  Sender: FDA-Public Use
  Company Number: US-VIIV HEALTHCARE LIMITED-A0939685A

PATIENT
  Sex: Male

DRUGS (3)
  1. INTELENCE [Concomitant]
  2. SELZENTRY [Suspect]
     Indication: HIV INFECTION
     Dosage: 300MG TWICE PER DAY
     Route: 048
  3. LEXIVA [Concomitant]

REACTIONS (3)
  - NAUSEA [None]
  - INCORRECT DOSE ADMINISTERED [None]
  - ABDOMINAL DISTENSION [None]
